FAERS Safety Report 6392377-5 (Version None)
Quarter: 2009Q4

REPORT INFORMATION
  Report Type: 
  Country: None (occurrence: None)
  Receive Date: 20091007
  Receipt Date: 20091002
  Transmission Date: 20100525
  Serious: Yes (Death, Hospitalization)
  Sender: FDA-Public Use
  Company Number: PHHY2009CA42590

PATIENT
  Sex: Female

DRUGS (13)
  1. CLOZARIL [Suspect]
     Indication: SCHIZOPHRENIA
     Dosage: 25 MG, BID
     Dates: start: 20090602
  2. SEROQUEL [Concomitant]
     Dosage: 400 HS
  3. EPIVAL [Concomitant]
  4. NOZINAN [Concomitant]
  5. CLONAZEPAM [Concomitant]
  6. TYLENOL (CAPLET) [Concomitant]
  7. AVAPRO [Concomitant]
  8. DIAMICRON [Concomitant]
  9. LIPITOR [Concomitant]
  10. PARIET [Concomitant]
  11. ASPIRIN [Concomitant]
  12. VITAMIN B-12 [Concomitant]
     Dosage: UNK
  13. DETROL [Concomitant]

REACTIONS (3)
  - DEATH [None]
  - PNEUMONIA [None]
  - RESPIRATORY DISORDER [None]
